FAERS Safety Report 7777367-X (Version None)
Quarter: 2011Q3

REPORT INFORMATION
  Report Type: 
  Country: None (occurrence: None)
  Receive Date: 20110926
  Receipt Date: 20110922
  Transmission Date: 20111222
  Serious: Yes (Other)
  Sender: FDA-Public Use
  Company Number: PHHY2011NL18260

PATIENT
  Sex: Male

DRUGS (11)
  1. ZOMETA [Suspect]
     Dosage: 4 MG/5 ML, CONCENTRATE FOR SOLUTION FOR IV INFUSION, 1X PER 28 DAYS
     Dates: start: 20110304
  2. ZOMETA [Suspect]
     Dosage: 4 MG/5 ML, CONCENTRATE FOR SOLUTION FOR IV INFUSION, 1X PER 28 DAYS
     Dates: start: 20110825
  3. ZOMETA [Suspect]
     Dosage: 4 MG/5 ML, CONCENTRATE FOR SOLUTION FOR IV INFUSION, 1X PER 28 DAYS
     Dates: start: 20110922
  4. ZOMETA [Suspect]
     Indication: LUNG CANCER METASTATIC
     Dosage: 4 MG/5 ML, CONCENTRATE FOR SOLUTION FOR IV INFUSION, 1X PER 28 DAYS
     Dates: start: 20110204
  5. METFORMIN HCL [Concomitant]
  6. ZOMETA [Suspect]
     Dosage: 4 MG/5 ML, CONCENTRATE FOR SOLUTION FOR IV INFUSION, 1X PER 28 DAYS
     Dates: start: 20110623
  7. MS CONTIN [Concomitant]
  8. LISINOPRIL [Concomitant]
  9. ZOMETA [Suspect]
     Dosage: 4 MG/5 ML, CONCENTRATE FOR SOLUTION FOR IV INFUSION, 1X PER 28 DAYS
     Dates: start: 20110725
  10. SIMVASTATIN [Concomitant]
  11. DEXAMETHASONE [Concomitant]
     Dosage: 1.5 MG, BID

REACTIONS (9)
  - NEOPLASM MALIGNANT [None]
  - MUSCULAR WEAKNESS [None]
  - NEOPLASM PROGRESSION [None]
  - METASTASES TO CENTRAL NERVOUS SYSTEM [None]
  - DIZZINESS [None]
  - HYPOKINESIA [None]
  - PAIN IN EXTREMITY [None]
  - CHILLS [None]
  - PYREXIA [None]
